FAERS Safety Report 21940632 (Version 1)
Quarter: 2023Q1

REPORT INFORMATION
  Report Type: Report from Study
  Country: US (occurrence: US)
  Receive Date: 20230201
  Receipt Date: 20230201
  Transmission Date: 20230418
  Serious: No
  Sender: FDA-Public Use
  Company Number: US-EXELIXIS-CABO-22052300

PATIENT
  Age: 74 Year
  Sex: Female

DRUGS (2)
  1. CABOMETYX [Suspect]
     Active Substance: CABOZANTINIB S-MALATE
     Indication: Renal cancer
     Dosage: 20 MG, QD
     Route: 048
     Dates: start: 20220422
  2. OPDIVO [Suspect]
     Active Substance: NIVOLUMAB
     Indication: Renal cancer
     Dosage: INFUSION

REACTIONS (11)
  - Tongue ulceration [Unknown]
  - Tremor [Unknown]
  - Palmar erythema [Unknown]
  - Furuncle [Unknown]
  - Pruritus [Unknown]
  - Rash macular [Unknown]
  - Dysphonia [Unknown]
  - Thrombosis [Unknown]
  - Dry mouth [Unknown]
  - Blood pressure increased [Unknown]
  - Hypoaesthesia [Recovered/Resolved]

NARRATIVE: CASE EVENT DATE: 20220601
